FAERS Safety Report 4903392-X (Version None)
Quarter: 2006Q1

REPORT INFORMATION
  Report Type: 
  Country: None (occurrence: None)
  Receive Date: 20060203
  Receipt Date: 20060119
  Transmission Date: 20060701
  Serious: Yes (Death, Life-Threatening, Other)
  Sender: FDA-Public Use
  Company Number: 2006-00134

PATIENT
  Age: 60 Year
  Sex: Female

DRUGS (4)
  1. VELCADE [Suspect]
     Dosage: 2/WEEK, INTRAVENOUS
     Route: 042
     Dates: start: 20050620, end: 20050912
  2. DEXAMETHASONE SODIUM PHOSPHATE [Concomitant]
  3. ARANESP [Concomitant]
  4. ZOMETA [Concomitant]

REACTIONS (7)
  - BLOOD BICARBONATE DECREASED [None]
  - COMA [None]
  - CONFUSIONAL STATE [None]
  - DISORIENTATION [None]
  - HYPERVENTILATION [None]
  - PYREXIA [None]
  - RESPIRATORY ALKALOSIS [None]
